FAERS Safety Report 17593803 (Version 1)
Quarter: 2020Q1

REPORT INFORMATION
  Report Type: Spontaneous
  Country: DE (occurrence: DE)
  Receive Date: 20200327
  Receipt Date: 20200327
  Transmission Date: 20200409
  Serious: Yes (Disabling, Congenital Anomaly, Other)
  Sender: FDA-Public Use
  Company Number: DE-VALIDUS PHARMACEUTICALS LLC-DE-2020VAL000225

PATIENT

DRUGS (9)
  1. PREDNISOLONE. [Suspect]
     Active Substance: PREDNISOLONE
     Indication: IMMUNE THROMBOCYTOPENIC PURPURA
     Dosage: 5-100 MG, UNKNOWN FREQ.(0?35+1 GW)5MG UNTIL WEEK 5+1, THEN PAUSE;100MG FOR 3 DAYS
     Route: 064
  2. TACROLIMUS. [Suspect]
     Active Substance: TACROLIMUS
     Indication: NEPHROTIC SYNDROME
     Dosage: UNK UNK, UNKNOWN FREQ. (0-19+6- GW)DAILY DOSE: 2 MG MILLIGRAM(S) EVERY DAY
     Route: 064
  3. COLECALCIFEROL [Suspect]
     Active Substance: CHOLECALCIFEROL
     Indication: OSTEOPOROSIS PROPHYLAXIS
     Dosage: 20 ?G, QD (DAILY DOSE: 20 ?G MICROGRAM(S) EVERY DAY)
     Route: 064
  4. FUROSEMIDE. [Suspect]
     Active Substance: FUROSEMIDE
     Indication: GLOMERULONEPHRITIS
     Dosage: UNK, UNKNOWN FREQ. (5 + 4-19 + 5 GW) 80 [MG / D] /-? IF NECESSARY, 40 TO 80 MG /
     Route: 064
  5. OMEPRAZOLE. [Suspect]
     Active Substance: OMEPRAZOLE
     Indication: GASTRITIS PROPHYLAXIS
     Dosage: 40 MG, QD (0-8 GW)
     Route: 064
  6. TORASEMIDE [Suspect]
     Active Substance: TORSEMIDE
     Indication: GLOMERULONEPHRITIS
     Dosage: UNK
     Route: 064
  7. FLUVASTATIN SODIUM. [Suspect]
     Active Substance: FLUVASTATIN SODIUM
     Indication: HYPERCHOLESTEROLAEMIA
     Dosage: 20 MG, QD (0-8 GW)
     Route: 064
  8. FOLIC ACID. [Suspect]
     Active Substance: FOLIC ACID
     Indication: PROPHYLAXIS OF NEURAL TUBE DEFECT
     Dosage: 5 MG, QD (DAILY DOSE: 5 MG MILLIGRAM(S) EVERY DAY)
     Route: 064
  9. RAMIPRIL. [Suspect]
     Active Substance: RAMIPRIL
     Indication: FOETAL EXPOSURE DURING PREGNANCY
     Dosage: 2.5 MG, UNK
     Route: 064

REACTIONS (15)
  - Limb reduction defect [Not Recovered/Not Resolved]
  - Atrial septal defect [Unknown]
  - Developmental hip dysplasia [Unknown]
  - Patent ductus arteriosus [Unknown]
  - Premature baby [Unknown]
  - Talipes [Unknown]
  - Limb hypoplasia congenital [Unknown]
  - Neck deformity [Unknown]
  - Retrognathia [Unknown]
  - Cleft palate [Unknown]
  - Dysmorphism [Unknown]
  - Aplasia [Unknown]
  - Congenital oral malformation [Unknown]
  - Facet joint syndrome [Unknown]
  - Foetal exposure during pregnancy [Unknown]
